FAERS Safety Report 9628331 (Version 1)
Quarter: 2013Q4

REPORT INFORMATION
  Report Type: Report from Study
  Country: US (occurrence: US)
  Receive Date: 20131017
  Receipt Date: 20131017
  Transmission Date: 20140711
  Serious: Yes (Death)
  Sender: FDA-Public Use
  Company Number: PHEH2013US021587

PATIENT
  Age: 76 Year
  Sex: Male

DRUGS (2)
  1. TOBI [Suspect]
     Indication: PSEUDOMONAS INFECTION
     Dosage: 300 MG, BID
  2. TOBI [Suspect]
     Indication: BRONCHITIS CHRONIC

REACTIONS (1)
  - Death [Fatal]
